FAERS Safety Report 7096662-3 (Version None)
Quarter: 2010Q4

REPORT INFORMATION
  Report Type: 
  Country: None (occurrence: None)
  Receive Date: 20101110
  Receipt Date: 20101110
  Transmission Date: 20110411
  Serious: Yes (Hospitalization)
  Sender: FDA-Public Use
  Company Number: None

PATIENT
  Age: 57 Year
  Sex: Female
  Weight: 86 kg

DRUGS (1)
  1. INFLIXIMAB -REMICADE- 10MG/ML [Suspect]
     Indication: PSORIASIS
     Dosage: 455MG ONCE OVER 2 HRS IV DRIP
     Route: 041
     Dates: start: 20101022, end: 20101022

REACTIONS (2)
  - PALPITATIONS [None]
  - STRESS [None]
